FAERS Safety Report 6954790-4 (Version None)
Quarter: 2010Q3

REPORT INFORMATION
  Report Type: 
  Country: None (occurrence: None)
  Receive Date: 20100830
  Receipt Date: 20100825
  Transmission Date: 20110219
  Serious: Yes (Other)
  Sender: FDA-Public Use
  Company Number: US-ASTRAZENECA-2007UW09688

PATIENT
  Age: 15245 Day
  Sex: Female
  Weight: 79.4 kg

DRUGS (35)
  1. SEROQUEL [Suspect]
     Indication: BIPOLAR DISORDER
     Dosage: 25 MG TO 100 MG
     Route: 048
     Dates: start: 19980601
  2. SEROQUEL [Suspect]
     Indication: DEPRESSION
     Dosage: 25 MG TO 100 MG
     Route: 048
     Dates: start: 19980601
  3. SEROQUEL [Suspect]
     Indication: ANXIETY
     Dosage: 25 MG TO 100 MG
     Route: 048
     Dates: start: 19980601
  4. SEROQUEL [Suspect]
     Indication: POST-TRAUMATIC STRESS DISORDER
     Dosage: 25 MG TO 100 MG
     Route: 048
     Dates: start: 19980601
  5. SEROQUEL [Suspect]
     Indication: SLEEP DISORDER
     Dosage: 25 MG TO 100 MG
     Route: 048
     Dates: start: 19980601
  6. SEROQUEL [Suspect]
     Route: 048
     Dates: start: 20000518
  7. SEROQUEL [Suspect]
     Route: 048
     Dates: start: 20000518
  8. SEROQUEL [Suspect]
     Route: 048
     Dates: start: 20000518
  9. SEROQUEL [Suspect]
     Route: 048
     Dates: start: 20000518
  10. SEROQUEL [Suspect]
     Route: 048
     Dates: start: 20000518
  11. SEROQUEL [Suspect]
     Dosage: 25MG, 1 Q. AM AND  2 PM
     Route: 048
     Dates: start: 20000819
  12. SEROQUEL [Suspect]
     Dosage: 25MG, 1 Q. AM AND  2 PM
     Route: 048
     Dates: start: 20000819
  13. SEROQUEL [Suspect]
     Dosage: 25MG, 1 Q. AM AND  2 PM
     Route: 048
     Dates: start: 20000819
  14. SEROQUEL [Suspect]
     Dosage: 25MG, 1 Q. AM AND  2 PM
     Route: 048
     Dates: start: 20000819
  15. SEROQUEL [Suspect]
     Dosage: 25MG, 1 Q. AM AND  2 PM
     Route: 048
     Dates: start: 20000819
  16. SEROQUEL [Suspect]
     Dosage: 100 - 300 MG
     Route: 048
     Dates: start: 20010821
  17. SEROQUEL [Suspect]
     Dosage: 100 - 300 MG
     Route: 048
     Dates: start: 20010821
  18. SEROQUEL [Suspect]
     Dosage: 100 - 300 MG
     Route: 048
     Dates: start: 20010821
  19. SEROQUEL [Suspect]
     Dosage: 100 - 300 MG
     Route: 048
     Dates: start: 20010821
  20. SEROQUEL [Suspect]
     Dosage: 100 - 300 MG
     Route: 048
     Dates: start: 20010821
  21. SIMVASTATIN [Concomitant]
     Route: 048
     Dates: start: 19990331
  22. VYTORIN [Concomitant]
     Dosage: 10MG - 20 MG
     Route: 048
     Dates: start: 20070718
  23. ZETIA [Concomitant]
     Route: 048
     Dates: start: 20070718
  24. AVALIDE [Concomitant]
     Dosage: 300 - 12.5 MG DAILY
     Route: 048
     Dates: start: 20070718
  25. REMERON [Concomitant]
     Indication: BIPOLAR DISORDER
     Route: 048
     Dates: start: 20040331
  26. REMERON [Concomitant]
     Indication: DEPRESSION
     Route: 048
     Dates: start: 20040331
  27. REMERON [Concomitant]
     Dates: start: 19980101, end: 20030101
  28. REMERON [Concomitant]
     Dates: start: 19980101, end: 20030101
  29. AMBIEN [Concomitant]
     Indication: SLEEP DISORDER
     Route: 048
     Dates: start: 20040520
  30. AMBIEN [Concomitant]
     Indication: POST-TRAUMATIC STRESS DISORDER
     Route: 048
     Dates: start: 20040520
  31. AMBIEN [Concomitant]
     Indication: INSOMNIA
     Route: 048
     Dates: start: 20040520
  32. AMBIEN [Concomitant]
     Dates: start: 19980101
  33. AMBIEN [Concomitant]
     Dates: start: 19980101
  34. AMBIEN [Concomitant]
     Dates: start: 19980101
  35. ATENOLOL [Concomitant]
     Route: 048

REACTIONS (10)
  - BLOOD CHOLESTEROL INCREASED [None]
  - DIABETES MELLITUS [None]
  - DIABETIC KETOACIDOSIS [None]
  - DIABETIC NEPHROPATHY [None]
  - DIABETIC NEUROPATHY [None]
  - HYPERLIPIDAEMIA [None]
  - OBESITY [None]
  - SUICIDAL IDEATION [None]
  - TYPE 1 DIABETES MELLITUS [None]
  - TYPE 2 DIABETES MELLITUS [None]
